FAERS Safety Report 19653229 (Version 1)
Quarter: 2021Q3

REPORT INFORMATION
  Report Type: Report from Study
  Country: CA (occurrence: CA)
  Receive Date: 20210803
  Receipt Date: 20210803
  Transmission Date: 20211014
  Serious: Yes (Other)
  Sender: FDA-Public Use
  Company Number: CA-ASTRAZENECA-2021A615419

PATIENT
  Sex: Male

DRUGS (3)
  1. CALQUENCE [Suspect]
     Active Substance: ACALABRUTINIB
     Indication: CHRONIC LYMPHOCYTIC LEUKAEMIA
     Route: 048
     Dates: start: 20210627, end: 20210705
  2. APIXABAN [Concomitant]
     Active Substance: APIXABAN
     Indication: CHRONIC LYMPHOCYTIC LEUKAEMIA
     Route: 065
     Dates: start: 20210627, end: 20210705
  3. APIXABAN [Concomitant]
     Active Substance: APIXABAN
     Indication: CHRONIC LYMPHOCYTIC LEUKAEMIA
     Route: 065
     Dates: start: 20210126, end: 20210705

REACTIONS (2)
  - Melaena [Recovering/Resolving]
  - Spontaneous haematoma [Recovering/Resolving]
